FAERS Safety Report 5823358-5 (Version None)
Quarter: 2008Q3

REPORT INFORMATION
  Report Type: 
  Country: None (occurrence: None)
  Receive Date: 20080725
  Receipt Date: 20080718
  Transmission Date: 20090109
  Serious: Yes (Other)
  Sender: FDA-Public Use
  Company Number: FR-JNJFOC-20080704348

PATIENT
  Sex: Female

DRUGS (4)
  1. TOPIRAMATE [Suspect]
     Indication: DRUG USE FOR UNKNOWN INDICATION
     Route: 048
  2. TERALITHE [Concomitant]
  3. SOLIAN [Concomitant]
  4. NOCTRAN [Concomitant]

REACTIONS (2)
  - METABOLIC ACIDOSIS [None]
  - TACHYPNOEA [None]
